FAERS Safety Report 11906714 (Version 1)
Quarter: 2016Q1

REPORT INFORMATION
  Report Type: Spontaneous
  Country: US (occurrence: None)
  Receive Date: 20160108
  Receipt Date: 20160108
  Transmission Date: 20160526
  Serious: Yes (Life-Threatening)
  Sender: FDA-Public Use
  Company Number: None

PATIENT
  Age: 43 Year
  Sex: Female
  Weight: 74.84 kg

DRUGS (4)
  1. BENADRYL [Concomitant]
     Active Substance: DIPHENHYDRAMINE HYDROCHLORIDE
  2. NOVOLOG [Suspect]
     Active Substance: INSULIN ASPART
     Indication: TYPE 1 DIABETES MELLITUS
     Dosage: 1.10 UNITS/HOUR + MEAL BOLUS^ ?24 HOURS A DAY ?INTO THE MUSCLE
     Route: 040
     Dates: start: 20151217, end: 20160106
  3. MINIMED INSULIN PUMP [Concomitant]
  4. MELATONIN [Concomitant]
     Active Substance: MELATONIN

REACTIONS (3)
  - Blood glucose increased [None]
  - Product quality issue [None]
  - Blood glucose decreased [None]

NARRATIVE: CASE EVENT DATE: 20151217
